FAERS Safety Report 9382943 (Version 1)
Quarter: 2013Q3

REPORT INFORMATION
  Report Type: Spontaneous
  Country: US (occurrence: US)
  Receive Date: 20130703
  Receipt Date: 20130703
  Transmission Date: 20140515
  Serious: No
  Sender: FDA-Public Use
  Company Number: US-009507513-1306USA012125

PATIENT
  Age: 55 Year
  Sex: Female

DRUGS (3)
  1. PEGINTRON [Suspect]
     Indication: HEPATITIS C
     Dosage: 1 INJECTION, QW
     Route: 058
     Dates: start: 20130603
  2. LISINOPRIL [Concomitant]
     Dosage: 2.5 MG, QD
  3. LISINOPRIL [Concomitant]
     Dosage: 5 MG, QD

REACTIONS (7)
  - Pain [Unknown]
  - Chills [Unknown]
  - Anxiety [Unknown]
  - Blood pressure increased [Unknown]
  - Fatigue [Unknown]
  - Drug dose omission [Unknown]
  - Product quality issue [Unknown]
